FAERS Safety Report 5001229-4 (Version None)
Quarter: 2006Q1

REPORT INFORMATION
  Report Type: 
  Country: None (occurrence: None)
  Receive Date: 20060315
  Receipt Date: 20060109
  Transmission Date: 20060701
  Serious: Yes (Hospitalization)
  Sender: FDA-Public Use
  Company Number: 432235

PATIENT
  Age: 53 Year
  Sex: Female
  Weight: 67.6 kg

DRUGS (5)
  1. BONIVA [Suspect]
     Indication: OSTEOPOROSIS
     Dosage: 1 PER MONTH ORAL
     Route: 048
     Dates: start: 20060105, end: 20060105
  2. DURAGESIC-100 [Concomitant]
  3. OXYCONTIN [Concomitant]
  4. PROZAC [Concomitant]
  5. LORAZEPAM [Concomitant]

REACTIONS (7)
  - BACK PAIN [None]
  - CHEST PAIN [None]
  - DYSPNOEA [None]
  - NIGHT SWEATS [None]
  - PAIN [None]
  - PAIN IN EXTREMITY [None]
  - VOMITING [None]
